FAERS Safety Report 20624068 (Version 1)
Quarter: 2022Q1

REPORT INFORMATION
  Report Type: Spontaneous
  Country: US (occurrence: US)
  Receive Date: 20220322
  Receipt Date: 20220322
  Transmission Date: 20220423
  Serious: No
  Sender: FDA-Public Use
  Company Number: US-BioDelivery Sciences International-2021BDSI0503

PATIENT
  Sex: Female

DRUGS (3)
  1. SYMPROIC [Suspect]
     Active Substance: NALDEMEDINE
     Indication: Product used for unknown indication
     Dosage: 1 TABLET
     Route: 065
  2. SYMPROIC [Suspect]
     Active Substance: NALDEMEDINE
     Dosage: HALF A TABLET
     Route: 065
  3. SYMPROIC [Suspect]
     Active Substance: NALDEMEDINE
     Dosage: A QUARTER TABLET
     Route: 065

REACTIONS (3)
  - Stress [Unknown]
  - Product administration error [Unknown]
  - Wrong technique in product usage process [Unknown]

NARRATIVE: CASE EVENT DATE: 20210101
